FAERS Safety Report 4417465-1 (Version None)
Quarter: 2004Q3

REPORT INFORMATION
  Report Type: 
  Country: None (occurrence: None)
  Receive Date: 20040803
  Receipt Date: 20040722
  Transmission Date: 20050211
  Serious: Yes (Death)
  Sender: FDA-Public Use
  Company Number: T03-USA-01339-01

PATIENT
  Age: 3 Day
  Sex: Female
  Weight: 0.651 kg

DRUGS (2)
  1. INFASURF PRESERVATIVE FREE [Suspect]
     Indication: NEONATAL RESPIRATORY DISTRESS SYNDROME
     Dosage: 1 TRACH
     Dates: start: 20030218, end: 20030220
  2. INDOCIN [Concomitant]

REACTIONS (4)
  - NEONATAL DISORDER [None]
  - PNEUMOTHORAX [None]
  - PREMATURE BABY [None]
  - PULMONARY HAEMORRHAGE [None]
